FAERS Safety Report 5218077-2 (Version None)
Quarter: 2007Q1

REPORT INFORMATION
  Report Type: 
  Country: None (occurrence: None)
  Receive Date: 20061130
  Receipt Date: 20060921
  Transmission Date: 20070707
  Serious: Yes (Hospitalization, Other)
  Sender: FDA-Public Use
  Company Number: US200609005592

PATIENT
  Age: 18 Year
  Sex: Male
  Weight: 81.6 kg

DRUGS (1)
  1. ZYPREXA [Suspect]
     Dosage: 15 MG, ORAL
     Route: 048
     Dates: start: 20040901, end: 20050301

REACTIONS (5)
  - DIABETES MELLITUS [None]
  - DIABETIC KETOACIDOSIS [None]
  - HYPERTENSION [None]
  - METABOLIC DISORDER [None]
  - PANCREATITIS [None]
